FAERS Safety Report 24045026 (Version 1)
Quarter: 2024Q3

REPORT INFORMATION
  Report Type: Spontaneous
  Country: US (occurrence: US)
  Receive Date: 20240703
  Receipt Date: 20240703
  Transmission Date: 20241017
  Serious: Yes (Other)
  Sender: AMGEN
  Company Number: US-AMGEN-USASP2024127103

PATIENT

DRUGS (12)
  1. ADALIMUMAB [Suspect]
     Active Substance: ADALIMUMAB\ISOPROPYL ALCOHOL
     Indication: Systemic lupus erythematosus
     Dosage: UNK
     Route: 065
  2. ADALIMUMAB [Suspect]
     Active Substance: ADALIMUMAB\ISOPROPYL ALCOHOL
     Indication: Lupus nephritis
  3. ADALIMUMAB [Suspect]
     Active Substance: ADALIMUMAB\ISOPROPYL ALCOHOL
     Indication: Cutaneous lupus erythematosus
  4. RITUXIMAB [Suspect]
     Active Substance: RITUXIMAB
     Indication: Systemic lupus erythematosus
     Dosage: UNK
     Route: 065
  5. RITUXIMAB [Suspect]
     Active Substance: RITUXIMAB
     Indication: Cutaneous lupus erythematosus
  6. RITUXIMAB [Suspect]
     Active Substance: RITUXIMAB
     Indication: Lupus nephritis
  7. ETANERCEPT [Suspect]
     Active Substance: ETANERCEPT
     Indication: Lupus nephritis
     Dosage: UNK
     Route: 065
  8. ETANERCEPT [Suspect]
     Active Substance: ETANERCEPT
     Indication: Systemic lupus erythematosus
  9. ETANERCEPT [Suspect]
     Active Substance: ETANERCEPT
     Indication: Cutaneous lupus erythematosus
  10. PREDNISONE [Suspect]
     Active Substance: PREDNISONE
     Indication: Lupus nephritis
     Dosage: UNK
     Route: 065
  11. PREDNISONE [Suspect]
     Active Substance: PREDNISONE
     Indication: Systemic lupus erythematosus
  12. PREDNISONE [Suspect]
     Active Substance: PREDNISONE
     Indication: Cutaneous lupus erythematosus

REACTIONS (18)
  - Chronic kidney disease [Unknown]
  - Rheumatoid arthritis [Unknown]
  - Diabetes mellitus [Unknown]
  - Sjogren^s syndrome [Unknown]
  - Fatigue [Unknown]
  - Proteinuria [Unknown]
  - Hypertension [Unknown]
  - Eczema [Unknown]
  - Lipid metabolism disorder [Unknown]
  - Myalgia [Unknown]
  - Affective disorder [Unknown]
  - Arthralgia [Unknown]
  - Rash [Unknown]
  - Dermatitis contact [Unknown]
  - Pain [Unknown]
  - Anxiety disorder [Unknown]
  - Osteoarthritis [Unknown]
  - Off label use [Unknown]
